FAERS Safety Report 7743604-0 (Version None)
Quarter: 2011Q3

REPORT INFORMATION
  Report Type: 
  Country: None (occurrence: None)
  Receive Date: 20110912
  Receipt Date: 20110705
  Transmission Date: 20111222
  Serious: Yes (Other)
  Sender: FDA-Public Use
  Company Number: US-BAYER-2011-059791

PATIENT
  Age: 55 Year
  Sex: Male

DRUGS (3)
  1. ANTIHYPERTENSIVES [Concomitant]
     Indication: HYPERTENSION
  2. NEXAVAR [Suspect]
     Dosage: 300 MG, BID
     Route: 048
     Dates: start: 20110804
  3. NEXAVAR [Suspect]
     Indication: HEPATIC NEOPLASM MALIGNANT
     Dosage: 400 MG, BID
     Route: 048
     Dates: start: 20110702, end: 20110716

REACTIONS (17)
  - PAIN [None]
  - HYPERSOMNIA [None]
  - INFLUENZA LIKE ILLNESS [None]
  - PAIN IN EXTREMITY [None]
  - SKIN EXFOLIATION [None]
  - COLOUR BLINDNESS [None]
  - APHAGIA [None]
  - MALAISE [None]
  - FLUID INTAKE REDUCED [None]
  - BLISTER [None]
  - NAUSEA [None]
  - OROPHARYNGEAL PAIN [None]
  - PLASMA VISCOSITY DECREASED [None]
  - ORAL PAIN [None]
  - ABASIA [None]
  - LIMB DISCOMFORT [None]
  - ERYTHEMA [None]
